FAERS Safety Report 12640324 (Version 1)
Quarter: 2016Q3

REPORT INFORMATION
  Report Type: Spontaneous
  Country: US (occurrence: None)
  Receive Date: 20160809
  Receipt Date: 20160809
  Transmission Date: 20161109
  Serious: No
  Sender: FDA-Public Use
  Company Number: None

PATIENT

DRUGS (2)
  1. BUPIVACAINE HCL BUPIVACAINE HCL [Suspect]
     Active Substance: BUPIVACAINE
  2. BUPIVACAINE HCL BUPIVACAINE HCL [Suspect]
     Active Substance: BUPIVACAINE

REACTIONS (1)
  - Product packaging confusion [None]
